FAERS Safety Report 11575556 (Version 4)
Quarter: 2016Q1

REPORT INFORMATION
  Report Type: Spontaneous
  Country: JP (occurrence: JP)
  Receive Date: 20150930
  Receipt Date: 20160222
  Transmission Date: 20160525
  Serious: Yes (Hospitalization, Other)
  Sender: FDA-Public Use
  Company Number: JP-009507513-1509JPN015122

PATIENT
  Age: 85 Year
  Sex: Male

DRUGS (9)
  1. PREGABALIN. [Concomitant]
     Active Substance: PREGABALIN
     Dosage: DAILY DOSE: 150 MG
     Route: 048
     Dates: start: 20150910, end: 20150914
  2. ROZEREM [Suspect]
     Active Substance: RAMELTEON
     Indication: INSOMNIA
     Dosage: DAILY DOSE: 8 MG
     Route: 048
     Dates: start: 20101004, end: 20150914
  3. TRIAZOLAM. [Suspect]
     Active Substance: TRIAZOLAM
     Indication: INSOMNIA
     Dosage: DAILY DOSE: 0.25 MG
     Route: 048
     Dates: start: 20140318, end: 20150914
  4. PREGABALIN. [Concomitant]
     Active Substance: PREGABALIN
     Indication: PAIN IN EXTREMITY
     Dosage: DAILY DOSE: 25 MG
     Route: 048
     Dates: start: 20150908, end: 20150909
  5. REFLEX [Suspect]
     Active Substance: MIRTAZAPINE
     Indication: DEPRESSION
     Dosage: 15MG TWO TIMES DAILY
     Route: 048
     Dates: start: 20111027, end: 20150914
  6. LORNOXICAM [Concomitant]
     Active Substance: LORNOXICAM
     Indication: SCIATICA
     Dosage: DAILY DOSE: 12 MG
     Route: 048
     Dates: start: 20150908, end: 20150914
  7. RABEPRAZOLE SODIUM. [Concomitant]
     Active Substance: RABEPRAZOLE SODIUM
     Indication: GASTROOESOPHAGEAL REFLUX DISEASE
     Dosage: DAILY DOSE: 10 MG
     Route: 048
     Dates: start: 20101021
  8. DICLOFENAC SODIUM. [Concomitant]
     Active Substance: DICLOFENAC SODIUM
     Indication: SCIATICA
     Dosage: DAILY DOSE: 50 MG, FOR EXTERNAL USE
     Dates: start: 20150908, end: 20150914
  9. NEUROTROPIN [Concomitant]
     Active Substance: NEUROTROPIN
     Indication: SCIATICA
     Dosage: DAILY DOSE: 8 UNITS
     Route: 048
     Dates: start: 20150910, end: 20150914

REACTIONS (1)
  - Hypoglycaemia [Recovered/Resolved]

NARRATIVE: CASE EVENT DATE: 20150914
